FAERS Safety Report 23074549 (Version 1)
Quarter: 2023Q4

REPORT INFORMATION
  Report Type: Other
  Country: US (occurrence: None)
  Receive Date: 20231017
  Receipt Date: 20231017
  Transmission Date: 20240109
  Serious: Yes (Other)
  Sender: FDA-Public Use
  Company Number: US-ROCHE-3439385

PATIENT
  Age: 54 Year
  Sex: Female

DRUGS (1)
  1. COTELLIC [Suspect]
     Active Substance: COBIMETINIB
     Indication: Histiocytosis
     Dosage: TAKE 1 TABLET BY MOUTH DAILY FOR 21 DAYS THEN HOLD FOR 7 DAYS AND REPEAT
     Route: 048

REACTIONS (1)
  - Cerebrovascular accident [Unknown]
